FAERS Safety Report 9909962 (Version 1)
Quarter: 2014Q1

REPORT INFORMATION
  Report Type: Spontaneous
  Country: US (occurrence: None)
  Receive Date: 20140214
  Receipt Date: 20140214
  Transmission Date: 20141002
  Serious: Yes (Death)
  Sender: FDA-Public Use
  Company Number: 2014020087

PATIENT
  Age: 51 Year
  Sex: Male

DRUGS (4)
  1. CARISOPRODOL (CARISOPRODOL) [Suspect]
  2. ACETAMINOPHEN (ACETAMINOPHEN) [Suspect]
  3. ACETAMINOPHEN/OXYCODONE [Suspect]
  4. MORPHINE [Suspect]

REACTIONS (1)
  - Completed suicide [None]
